FAERS Safety Report 25561599 (Version 1)
Quarter: 2025Q3

REPORT INFORMATION
  Report Type: Spontaneous
  Country: US (occurrence: US)
  Receive Date: 20250716
  Receipt Date: 20250716
  Transmission Date: 20251021
  Serious: No
  Sender: NOVO NORDISK
  Company Number: US-NOVOPROD-1352541

PATIENT
  Sex: Female

DRUGS (1)
  1. OZEMPIC [Suspect]
     Active Substance: SEMAGLUTIDE
     Indication: Glucose tolerance impaired
     Dosage: 0.25 MG, QW
     Route: 058

REACTIONS (4)
  - Hypoaesthesia [Recovered/Resolved]
  - Alopecia [Recovered/Resolved]
  - Feeling abnormal [Recovered/Resolved]
  - Product use in unapproved indication [Unknown]
